FAERS Safety Report 7774493-6 (Version None)
Quarter: 2011Q3

REPORT INFORMATION
  Report Type: 
  Country: None (occurrence: None)
  Receive Date: 20110923
  Receipt Date: 20110914
  Transmission Date: 20111222
  Serious: Yes (Hospitalization)
  Sender: FDA-Public Use
  Company Number: FR-SANOFI-AVENTIS-2011SA059787

PATIENT
  Age: 85 Year
  Sex: Male

DRUGS (14)
  1. PREVISCAN [Suspect]
     Route: 048
     Dates: start: 20110810, end: 20110810
  2. IPERTEN [Concomitant]
     Route: 048
  3. HYPERIUM [Concomitant]
     Route: 048
  4. LOVENOX [Suspect]
     Route: 058
     Dates: start: 20110801, end: 20110808
  5. REPAGLINIDE [Concomitant]
     Route: 048
  6. PREVISCAN [Suspect]
     Indication: ATRIAL FIBRILLATION
     Route: 048
     Dates: end: 20110808
  7. ATACAND [Concomitant]
     Route: 048
  8. PRAVASTATIN SODIUM [Concomitant]
     Route: 048
  9. CORDARONE [Concomitant]
     Indication: ATRIAL FIBRILLATION
     Route: 048
  10. LANTUS [Concomitant]
     Route: 058
  11. ASPIRIN [Suspect]
     Route: 048
     Dates: start: 20110801
  12. ALLOPURINOL [Concomitant]
     Indication: GOUT
     Route: 048
  13. LASIX [Concomitant]
     Dosage: 500 MG TABLET AT 0.25 DF DAILY=125 MG DAILY
     Route: 048
  14. AUGMENTIN '125' [Concomitant]
     Route: 048
     Dates: end: 20110807

REACTIONS (3)
  - HAEMATOMA [None]
  - INTERNATIONAL NORMALISED RATIO INCREASED [None]
  - ARTERIAL HAEMORRHAGE [None]
